FAERS Safety Report 7492178-0 (Version None)
Quarter: 2011Q2

REPORT INFORMATION
  Report Type: 
  Country: None (occurrence: None)
  Receive Date: 20110519
  Receipt Date: 20101015
  Transmission Date: 20111010
  Serious: No
  Sender: FDA-Public Use
  Company Number: US-NOVEN-ALL1-2010-05402

PATIENT
  Sex: Male
  Weight: 21.769 kg

DRUGS (2)
  1. DAYTRANA [Suspect]
     Dosage: UNK MG, 1X/DAY:QD
     Route: 062
  2. PERIACTIN [Concomitant]
     Dosage: UNK, 1X/DAY:QD
     Route: 048

REACTIONS (1)
  - MALAISE [None]
